FAERS Safety Report 5134091-X (Version None)
Quarter: 2006Q4

REPORT INFORMATION
  Report Type: 
  Country: None (occurrence: None)
  Receive Date: 20061024
  Receipt Date: 20060424
  Transmission Date: 20070319
  Serious: Yes (Death)
  Sender: FDA-Public Use
  Company Number: US-SANOFI-SYNTHELABO-A03200602627

PATIENT
  Sex: Male
  Weight: 82.54 kg

DRUGS (13)
  1. PLAVIX [Suspect]
     Indication: STENT PLACEMENT
     Route: 048
     Dates: start: 20020101
  2. ATENOLOL [Concomitant]
     Route: 048
  3. HUMULIN 70/30 [Concomitant]
     Dosage: 70/30 30 UNITS QAM AND 20 UNITS QPM
     Route: 058
  4. SIMVASTATIN [Concomitant]
     Dosage: HALF OF 80MG TABLET
     Route: 048
  5. FUROSEMIDE [Concomitant]
     Route: 048
  6. PROPO-N/APAP [Concomitant]
     Dosage: 100/650 MG Q6HR PRN
     Route: 048
  7. TRIAM [Concomitant]
     Dosage: ONE TO TWO TIMES DAILY
     Route: 061
  8. ASPIRIN [Concomitant]
     Route: 048
  9. HUMULIN 70/30 [Concomitant]
     Dosage: 30 UNITS IN AM AND 20 UNITS PM
     Route: 058
  10. NITROGLYCERIN [Concomitant]
     Route: 060
  11. METOCLOPRAMIDE [Concomitant]
     Route: 048
  12. FELODIPINE [Concomitant]
     Route: 048
  13. CARBIDOPA LEVIDOPA [Concomitant]
     Dosage: 25/100MG, TWO TABLETS FOUR TIMES A DAY
     Route: 048

REACTIONS (3)
  - DRUG INEFFECTIVE [None]
  - MYOCARDIAL INFARCTION [None]
  - THROMBOTIC STROKE [None]
